FAERS Safety Report 9059885 (Version 1)
Quarter: 2013Q1

REPORT INFORMATION
  Report Type: Spontaneous
  Country: US (occurrence: US)
  Receive Date: 20130212
  Receipt Date: 20130212
  Transmission Date: 20140127
  Serious: No
  Sender: FDA-Public Use
  Company Number: US-PFIZER INC-2013051934

PATIENT
  Sex: Female
  Weight: 40.82 kg

DRUGS (2)
  1. SPIRONOLACTONE [Suspect]
     Indication: POLYCYSTIC OVARIES
     Dosage: UNK
  2. METFORMIN HCL [Interacting]
     Indication: GLUCOSE TOLERANCE IMPAIRED
     Dosage: UNK

REACTIONS (6)
  - Drug interaction [Unknown]
  - Dehydration [Unknown]
  - Malaise [Unknown]
  - Weight decreased [Unknown]
  - Stress [Unknown]
  - Off label use [Unknown]
